FAERS Safety Report 23163037 (Version 3)
Quarter: 2024Q3

REPORT INFORMATION
  Report Type: Report from Study
  Country: US (occurrence: US)
  Receive Date: 20231109
  Receipt Date: 20240712
  Transmission Date: 20241017
  Serious: Yes (Other)
  Sender: UCB
  Company Number: US-UCBSA-2023040794

PATIENT
  Age: 10 Year
  Sex: Female

DRUGS (5)
  1. FINTEPLA [Suspect]
     Active Substance: FENFLURAMINE
     Indication: Lennox-Gastaut syndrome
     Dosage: 4.5 MILLILITER, 2X/DAY (BID)
     Dates: start: 20230719
  2. FINTEPLA [Suspect]
     Active Substance: FENFLURAMINE
     Dosage: 4.5 MILLILITER, 2X/DAY (BID)
     Dates: start: 2023
  3. FINTEPLA [Suspect]
     Active Substance: FENFLURAMINE
     Dosage: 4.5 MILLILITER, 2X/DAY (BID)
     Dates: start: 2023
  4. FINTEPLA [Suspect]
     Active Substance: FENFLURAMINE
     Dosage: 4.5 MILLILITER, 2X/DAY (BID)
     Dates: start: 2023
  5. FINTEPLA [Suspect]
     Active Substance: FENFLURAMINE
     Dosage: 3.5 MILLILITER, 2X/DAY (BID)

REACTIONS (7)
  - Change in seizure presentation [Not Recovered/Not Resolved]
  - Tremor [Not Recovered/Not Resolved]
  - Balance disorder [Not Recovered/Not Resolved]
  - Cough [Not Recovered/Not Resolved]
  - Rhinorrhoea [Not Recovered/Not Resolved]
  - Decreased appetite [Recovered/Resolved]
  - Weight decreased [Recovered/Resolved]

NARRATIVE: CASE EVENT DATE: 20230806
